FAERS Safety Report 6335003-3 (Version None)
Quarter: 2009Q3

REPORT INFORMATION
  Report Type: 
  Country: None (occurrence: None)
  Receive Date: 20090831
  Receipt Date: 20090818
  Transmission Date: 20100115
  Serious: Yes (Other)
  Sender: FDA-Public Use
  Company Number: US-PFIZER INC-2007084895

PATIENT
  Sex: Female
  Weight: 58.181 kg

DRUGS (10)
  1. CHANTIX [Suspect]
     Indication: SMOKING CESSATION THERAPY
     Dosage: UNK
     Dates: start: 20070901, end: 20090817
  2. UNIPHYL [Interacting]
     Indication: ASTHMA
  3. COZAAR [Concomitant]
  4. MEDROL [Concomitant]
  5. LEXAPRO [Concomitant]
  6. SPIRIVA [Concomitant]
     Dosage: UNK
  7. PULMICORT-100 [Concomitant]
     Dosage: UNK
  8. PROVENTIL GENTLEHALER [Concomitant]
  9. SYMBICORT [Concomitant]
     Dosage: UNK
  10. XOLAIR [Concomitant]
     Indication: ASTHMA
     Dosage: 300MG,EVERY OTHER WEEK
     Route: 058

REACTIONS (6)
  - BLOOD PRESSURE INCREASED [None]
  - DRUG INTERACTION [None]
  - FATIGUE [None]
  - FEELING ABNORMAL [None]
  - GAIT DISTURBANCE [None]
  - OEDEMA PERIPHERAL [None]
